FAERS Safety Report 21574918 (Version 1)
Quarter: 2022Q4

REPORT INFORMATION
  Report Type: Spontaneous
  Country: US (occurrence: US)
  Receive Date: 20221110
  Receipt Date: 20221110
  Transmission Date: 20230113
  Serious: Yes (Other)
  Sender: FDA-Public Use
  Company Number: US-COLGATE PALMOLIVE COMPANY-20221101982

PATIENT

DRUGS (1)
  1. COLGATE TOTAL ADVANCED PRO-SHIELD PEPPERMINT BLAST [Suspect]
     Active Substance: CETYLPYRIDINIUM CHLORIDE
     Dosage: UNKNOWN DOSE, BID
     Dates: start: 2021, end: 202210

REACTIONS (4)
  - Tooth injury [Unknown]
  - Dental caries [Unknown]
  - Tooth fracture [Unknown]
  - Oral pain [Recovering/Resolving]
